FAERS Safety Report 10527712 (Version 2)
Quarter: 2014Q4

REPORT INFORMATION
  Report Type: Report from Study
  Country: CO (occurrence: CO)
  Receive Date: 20141020
  Receipt Date: 20141028
  Transmission Date: 20150528
  Serious: Yes (Death, Hospitalization)
  Sender: FDA-Public Use
  Company Number: CO-ABBVIE-14K-036-1296721-00

PATIENT
  Sex: Female
  Weight: 70 kg

DRUGS (1)
  1. ZEMPLAR [Suspect]
     Active Substance: PARICALCITOL
     Indication: HYPERPARATHYROIDISM SECONDARY
     Route: 048
     Dates: start: 20140606, end: 20140930

REACTIONS (5)
  - Blood pressure decreased [Fatal]
  - Myocardial infarction [Fatal]
  - Respiratory distress [Fatal]
  - Pulmonary mass [Fatal]
  - Hypoglycaemia [Fatal]
